FAERS Safety Report 7806329-9 (Version None)
Quarter: 2011Q4

REPORT INFORMATION
  Report Type: 
  Country: None (occurrence: None)
  Receive Date: 20111007
  Receipt Date: 20111007
  Transmission Date: 20120403
  Serious: Yes (Other)
  Sender: FDA-Public Use
  Company Number: None

PATIENT
  Sex: Male

DRUGS (2)
  1. SUTENT [Suspect]
     Indication: RENAL CANCER
     Dosage: 50 MG QD PO
     Route: 048
     Dates: start: 20110715
  2. SUTENT [Suspect]
     Indication: RENAL CANCER
     Dosage: 50 MG QD PO
     Route: 048
     Dates: start: 20110925

REACTIONS (1)
  - DRUG INEFFECTIVE [None]
